FAERS Safety Report 6413902-1 (Version None)
Quarter: 2009Q4

REPORT INFORMATION
  Report Type: 
  Country: None (occurrence: None)
  Receive Date: 20091026
  Receipt Date: 20091016
  Transmission Date: 20100525
  Serious: Yes (Other)
  Sender: FDA-Public Use
  Company Number: B0598050A

PATIENT
  Age: 47 Year
  Sex: Male

DRUGS (9)
  1. SERETIDE [Suspect]
     Indication: CHRONIC OBSTRUCTIVE PULMONARY DISEASE
     Route: 055
  2. NORVIR [Suspect]
     Indication: HIV INFECTION
     Dosage: 100MG PER DAY
     Route: 048
  3. ANALGESIA [Concomitant]
     Indication: PAIN
  4. ALBUTEROL [Concomitant]
  5. EMTRICITABINE [Concomitant]
     Indication: HIV INFECTION
  6. TENOFOVIR [Concomitant]
     Indication: HIV INFECTION
  7. ATAZANAVIR [Concomitant]
     Indication: HIV INFECTION
  8. TIOTROPIUM [Concomitant]
     Dosage: 10MCG PER DAY
  9. HYDROCORTISONE [Concomitant]

REACTIONS (5)
  - ADRENAL INSUFFICIENCY [None]
  - CUSHING'S SYNDROME [None]
  - CUSHINGOID [None]
  - DRUG INTERACTION [None]
  - WEIGHT INCREASED [None]
